FAERS Safety Report 7374136-X (Version None)
Quarter: 2011Q1

REPORT INFORMATION
  Report Type: 
  Country: None (occurrence: None)
  Receive Date: 20110325
  Receipt Date: 20110322
  Transmission Date: 20110831
  Serious: No
  Sender: FDA-Public Use
  Company Number: US-PFIZER INC-US-WYE-H16314510

PATIENT
  Sex: Male

DRUGS (5)
  1. PROTONIX [Suspect]
     Dosage: UNK
     Route: 065
  2. SALBUTAMOL [Suspect]
  3. COMBIVENT [Suspect]
  4. CHANTIX [Suspect]
  5. SPIRIVA [Suspect]

REACTIONS (1)
  - DRUG SCREEN FALSE POSITIVE [None]
